FAERS Safety Report 6274648-6 (Version None)
Quarter: 2009Q3

REPORT INFORMATION
  Report Type: 
  Country: None (occurrence: None)
  Receive Date: 20090717
  Receipt Date: 20090702
  Transmission Date: 20100115
  Serious: Yes (Other)
  Sender: FDA-Public Use
  Company Number: 2009PV000052

PATIENT
  Age: 43 Year
  Sex: Male

DRUGS (1)
  1. DEPOCYT [Suspect]
     Indication: METASTASES TO CENTRAL NERVOUS SYSTEM
     Dosage: 50 MG; X2; INTH
     Route: 037
     Dates: start: 20090603, end: 20090616

REACTIONS (5)
  - BONE MARROW FAILURE [None]
  - CATHETER RELATED INFECTION [None]
  - HEADACHE [None]
  - LEUKOPENIA [None]
  - THROMBOCYTOPENIA [None]
